FAERS Safety Report 4289708-9 (Version None)
Quarter: 2004Q1

REPORT INFORMATION
  Report Type: 
  Country: None (occurrence: None)
  Receive Date: 20040126
  Receipt Date: 20031210
  Transmission Date: 20041129
  Serious: Yes (Hospitalization)
  Sender: FDA-Public Use
  Company Number: 03P-163-0244574-00

PATIENT
  Age: 45 Year
  Sex: Female

DRUGS (1)
  1. SYNTHROID [Suspect]
     Indication: HYPOTHYROIDISM
     Dosage: 0.15 MG, 1 IN 1 D, PER ORAL
     Route: 048
     Dates: start: 20030920

REACTIONS (1)
  - HEART RATE INCREASED [None]
